FAERS Safety Report 11977102 (Version 1)
Quarter: 2016Q1

REPORT INFORMATION
  Report Type: Spontaneous
  Country: US (occurrence: US)
  Receive Date: 20160129
  Receipt Date: 20160129
  Transmission Date: 20160526
  Serious: No
  Sender: FDA-Public Use
  Company Number: US-PERRIGO-15US012776

PATIENT
  Age: 36 Year
  Sex: Female
  Weight: 56.69 kg

DRUGS (1)
  1. IBUPROFEN AND DIPHENHYDRAMINE CITRATE [Suspect]
     Active Substance: DIPHENHYDRAMINE CITRATE\IBUPROFEN
     Indication: ACCIDENTAL EXPOSURE TO PRODUCT
     Dosage: FIVE TABLETS, SINGLE
     Route: 048
     Dates: start: 20151204, end: 20151204

REACTIONS (6)
  - Accidental overdose [Recovered/Resolved]
  - Feeling abnormal [Not Recovered/Not Resolved]
  - Feeling jittery [Not Recovered/Not Resolved]
  - Nervousness [Not Recovered/Not Resolved]
  - Fatigue [Recovered/Resolved]
  - Product name confusion [Recovered/Resolved]

NARRATIVE: CASE EVENT DATE: 20151204
